FAERS Safety Report 10037300 (Version 2)
Quarter: 2014Q2

REPORT INFORMATION
  Report Type: Spontaneous
  Country: ES (occurrence: None)
  Receive Date: 20140324
  Receipt Date: 20140409
  Transmission Date: 20141212
  Serious: Yes (Death)
  Sender: FDA-Public Use
  Company Number: ES-MDCO-14-00067

PATIENT
  Age: 77 Year
  Sex: Male

DRUGS (8)
  1. ANGIOX [Suspect]
     Indication: HEART VALVE REPLACEMENT
     Dosage: 108 MG (1.5 MG/KG)
     Route: 040
  2. ACE INHIBITORS (ACE INHIBITORS) [Concomitant]
  3. DIGOXIN (DIGOXIN) [Concomitant]
  4. ANTIDIABETICS (DRUGS USED IN DIABETES) [Concomitant]
  5. ACENOCOUMAROL (ACENOCOUMAROL) [Concomitant]
  6. FUROSEMIDE (FUROSEMIDE) [Concomitant]
  7. UNFRACTIONATED HEPARIN (HEPARIN) [Concomitant]
  8. FONDAPARINUX (FONDAPARINUX) [Concomitant]

REACTIONS (13)
  - Heparin-induced thrombocytopenia [None]
  - Coagulopathy [None]
  - Right ventricular dysfunction [None]
  - Hypotension [None]
  - Cardiac failure [None]
  - Multi-organ failure [None]
  - International normalised ratio increased [None]
  - Activated partial thromboplastin time prolonged [None]
  - Haemodynamic instability [None]
  - Overdose [None]
  - Renal failure acute [None]
  - Haemorrhage [None]
  - Intrapericardial thrombosis [None]
